FAERS Safety Report 4393190-0 (Version None)
Quarter: 2004Q3

REPORT INFORMATION
  Report Type: 
  Country: None (occurrence: None)
  Receive Date: 20040702
  Receipt Date: 20040622
  Transmission Date: 20050211
  Serious: Yes (Life-Threatening, Hospitalization, Disabling)
  Sender: FDA-Public Use
  Company Number: 2004042229

PATIENT
  Age: 58 Year
  Sex: Female
  Weight: 60 kg

DRUGS (3)
  1. SORTIS (ATORVASTATIN) [Suspect]
     Indication: HYPERCHOLESTEROLAEMIA
     Dosage: 10 MG (10 MG, 1 IN 1 D)ORAL
     Route: 048
  2. METOPROLOL [Concomitant]
  3. CO-DIOVAN (HYDROCHOLOROTHIAZIDE, VALSARTAN) [Concomitant]

REACTIONS (2)
  - GLOMERULONEPHRITIS [None]
  - WEGENER'S GRANULOMATOSIS [None]
